FAERS Safety Report 12463091 (Version 1)
Quarter: 2016Q2

REPORT INFORMATION
  Report Type: Spontaneous
  Country: US (occurrence: US)
  Receive Date: 20160614
  Receipt Date: 20160614
  Transmission Date: 20160815
  Serious: No
  Sender: FDA-Public Use
  Company Number: US-BAXTER-2016BAX029947

PATIENT

DRUGS (4)
  1. 0.9% SODIUM CHLORIDE INJECTION [Suspect]
     Active Substance: SODIUM CHLORIDE
     Indication: PRODUCT USED FOR UNKNOWN INDICATION
     Route: 042
  2. INSULIN [Suspect]
     Active Substance: INSULIN NOS
     Indication: PRODUCT USED FOR UNKNOWN INDICATION
     Dosage: CONCENTRATION: 100 UNITS/100 ML; DOSE: 1 UNIT/HR AT RATE OF 1ML/HR
     Route: 041
  3. INSULIN [Suspect]
     Active Substance: INSULIN NOS
     Dosage: 2-3 INSULIN BOLUS
     Route: 040
  4. INSULIN [Suspect]
     Active Substance: INSULIN NOS
     Dosage: CONCENTRATION: 100 UNITS/100 ML; DOSE: 5-6 UNITS/HR
     Route: 041

REACTIONS (2)
  - Blood glucose increased [Recovered/Resolved]
  - Underdose [Recovered/Resolved]

NARRATIVE: CASE EVENT DATE: 20160524
